FAERS Safety Report 11160273 (Version 1)
Quarter: 2015Q2

REPORT INFORMATION
  Report Type: Spontaneous
  Country: NO (occurrence: NO)
  Receive Date: 20150603
  Receipt Date: 20150603
  Transmission Date: 20150821
  Serious: Yes (Other)
  Sender: FDA-Public Use
  Company Number: NO-ROCHE-1585662

PATIENT
  Age: 65 Year
  Sex: Male

DRUGS (3)
  1. ROACTEMRA [Suspect]
     Active Substance: TOCILIZUMAB
     Route: 042
     Dates: start: 20150512
  2. ROACTEMRA [Suspect]
     Active Substance: TOCILIZUMAB
     Indication: REITER^S SYNDROME
     Route: 042
     Dates: start: 20100504, end: 20150203
  3. ROACTEMRA [Suspect]
     Active Substance: TOCILIZUMAB
     Indication: REITER^S SYNDROME
     Route: 058
     Dates: start: 20150203, end: 20150512

REACTIONS (3)
  - Aortic aneurysm [Unknown]
  - Joint swelling [Unknown]
  - Off label use [Unknown]

NARRATIVE: CASE EVENT DATE: 201505
